FAERS Safety Report 9980349 (Version 1)
Quarter: 2014Q1

REPORT INFORMATION
  Report Type: Spontaneous
  Country: US (occurrence: None)
  Receive Date: 20140305
  Receipt Date: 20140305
  Transmission Date: 20141002
  Serious: Yes (Hospitalization)
  Sender: FDA-Public Use
  Company Number: None

PATIENT
  Age: 37 Year
  Sex: Female

DRUGS (4)
  1. NORGESTIMATE/ETHINYL ESTRADIOL [Suspect]
     Dosage: 1 PILL QD ORAL 0.25MG-35MCG
     Route: 048
  2. METFORMIN [Concomitant]
  3. SPIRINOLACTONE [Concomitant]
  4. SPRINTEC (28) ( NORGESTIMATE-ETHINYL ESTRADIOL) [Concomitant]

REACTIONS (1)
  - Deep vein thrombosis [None]
